FAERS Safety Report 7420304-8 (Version None)
Quarter: 2011Q2

REPORT INFORMATION
  Report Type: 
  Country: None (occurrence: None)
  Receive Date: 20110418
  Receipt Date: 20110406
  Transmission Date: 20111010
  Serious: Yes (Hospitalization)
  Sender: FDA-Public Use
  Company Number: PHHY2011US29356

PATIENT
  Age: 26 Year
  Sex: Female
  Weight: 55.782 kg

DRUGS (1)
  1. TOBI [Suspect]
     Dosage: 300 MG, BID, 28 DAYS ON 28 DAYS OFF
     Dates: start: 20110203, end: 20110330

REACTIONS (1)
  - LUNG INFECTION [None]
